FAERS Safety Report 4596865-3 (Version None)
Quarter: 2005Q1

REPORT INFORMATION
  Report Type: 
  Country: None (occurrence: None)
  Receive Date: 20050228
  Receipt Date: 20050214
  Transmission Date: 20050727
  Serious: Yes (Hospitalization)
  Sender: FDA-Public Use
  Company Number: 2005018723

PATIENT
  Age: 26 Year
  Sex: Male
  Weight: 62 kg

DRUGS (4)
  1. SULFASALAZINE [Suspect]
     Indication: ILL-DEFINED DISORDER
     Dosage: 1500 MG (INTERVAL: EVERY DAY), ORAL
     Route: 048
     Dates: start: 20040903, end: 20041002
  2. APOREX (DEXTROPROVPOXYPHENE HYDROCHLORIDE, PARACETAMOL) [Concomitant]
  3. KETOPROFEN [Concomitant]
  4. OMEPRAZOLE [Concomitant]

REACTIONS (13)
  - ANTI-HBC ANTIBODY POSITIVE [None]
  - ANTI-HBS ANTIBODY POSITIVE [None]
  - CYTOLYTIC HEPATITIS [None]
  - DRESSLER'S SYNDROME [None]
  - DRUG INEFFECTIVE [None]
  - DRUG RASH WITH EOSINOPHILIA AND SYSTEMIC SYMPTOMS [None]
  - EOSINOPHILIA [None]
  - EPSTEIN-BARR VIRUS ANTIBODY POSITIVE [None]
  - GASTROINTESTINAL DISORDER [None]
  - LYMPHADENOPATHY [None]
  - PURPURA [None]
  - SKIN EXFOLIATION [None]
  - TREATMENT NONCOMPLIANCE [None]
